FAERS Safety Report 8392552-4 (Version None)
Quarter: 2012Q2

REPORT INFORMATION
  Report Type: 
  Country: None (occurrence: None)
  Receive Date: 20120529
  Receipt Date: 20120522
  Transmission Date: 20120825
  Serious: Yes (Other)
  Sender: FDA-Public Use
  Company Number: US-MERCK-1205USA04447

PATIENT
  Sex: Female

DRUGS (2)
  1. TAMOXIFEN CITRATE [Suspect]
     Route: 065
  2. FOSAMAX [Suspect]
     Route: 048

REACTIONS (6)
  - UTERINE CANCER [None]
  - EYE DISORDER [None]
  - BLOOD CALCIUM ABNORMAL [None]
  - FALL [None]
  - OEDEMA PERIPHERAL [None]
  - FOOT FRACTURE [None]
